FAERS Safety Report 20665031 (Version 3)
Quarter: 2022Q2

REPORT INFORMATION
  Report Type: Spontaneous
  Country: JP (occurrence: JP)
  Receive Date: 20220401
  Receipt Date: 20220523
  Transmission Date: 20220721
  Serious: Yes (Hospitalization)
  Sender: FDA-Public Use
  Company Number: JP-PFIZER INC-202200405512

PATIENT
  Age: 23 Year
  Sex: Female
  Weight: 53 kg

DRUGS (8)
  1. PAXLOVID [Interacting]
     Active Substance: NIRMATRELVIR\RITONAVIR
     Indication: COVID-19 treatment
     Dosage: RITONAVIR 200 MG WAS DIVIDED IN 2 DOSAGES DAILY
     Route: 048
     Dates: start: 20220309, end: 20220310
  2. CYCLOSPORINE [Interacting]
     Active Substance: CYCLOSPORINE
     Dosage: 300MG (DIVIDED IN 2 DOSAGES)
     Route: 048
     Dates: end: 20220316
  3. ELTROMBOPAG OLAMINE [Concomitant]
     Active Substance: ELTROMBOPAG OLAMINE
     Dosage: UNK
     Route: 048
  4. TEPRENONE [Concomitant]
     Active Substance: TEPRENONE
     Dosage: UNK
     Route: 048
  5. SULFAMETHOXAZOLE\TRIMETHOPRIM [Concomitant]
     Active Substance: SULFAMETHOXAZOLE\TRIMETHOPRIM
     Dosage: UNK
     Route: 048
  6. JEMINA [Concomitant]
     Dosage: UNK
     Route: 048
  7. TRANEXAMIC ACID [Concomitant]
     Active Substance: TRANEXAMIC ACID
     Dosage: UNK
     Route: 048
  8. CARBAZOCHROME SODIUM SULFONATE [Concomitant]
     Active Substance: CARBAZOCHROME SODIUM SULFONATE
     Dosage: UNK
     Route: 048

REACTIONS (7)
  - Renal impairment [Not Recovered/Not Resolved]
  - Labelled drug-drug interaction medication error [Unknown]
  - Drug interaction [Unknown]
  - Drug level increased [Unknown]
  - Nausea [Unknown]
  - Vomiting [Recovering/Resolving]
  - Blood creatine abnormal [Recovering/Resolving]

NARRATIVE: CASE EVENT DATE: 20220301
